FAERS Safety Report 5878664-5 (Version None)
Quarter: 2008Q3

REPORT INFORMATION
  Report Type: 
  Country: None (occurrence: None)
  Receive Date: 20080910
  Receipt Date: 20080825
  Transmission Date: 20090109
  Serious: Yes (Hospitalization)
  Sender: FDA-Public Use
  Company Number: 002#2#2008-00314

PATIENT
  Age: 75 Year
  Sex: Male
  Weight: 64.8644 kg

DRUGS (7)
  1. NEUPRO [Suspect]
     Indication: PARKINSON'S DISEASE
     Dosage: 2MG/24H, 1 IN 1 D, TRANSDERMAL
     Route: 062
     Dates: start: 20070905, end: 20071215
  2. NEUPRO [Suspect]
     Indication: PARKINSON'S DISEASE
     Dosage: 2MG/24H, 1 IN 1 D, TRANSDERMAL
     Route: 062
     Dates: start: 20071216, end: 20071216
  3. REQUIP [Concomitant]
  4. AMANTADINE [Concomitant]
  5. SELEGILINE HCL [Concomitant]
  6. LEVOTHYROXINE SODIUM [Concomitant]
  7. ASPIRIN [Concomitant]

REACTIONS (8)
  - ABASIA [None]
  - ABNORMAL DREAMS [None]
  - APPLICATION SITE ERYTHEMA [None]
  - CEREBROVASCULAR ACCIDENT [None]
  - CONVULSION [None]
  - DYSPHAGIA [None]
  - FALL [None]
  - SOMNOLENCE [None]
